FAERS Safety Report 14185547 (Version 1)
Quarter: 2017Q4

REPORT INFORMATION
  Report Type: Report from Study
  Country: None (occurrence: ES)
  Receive Date: 20171113
  Receipt Date: 20171113
  Transmission Date: 20180321
  Serious: Yes (Other)
  Sender: FDA-Public Use
  Company Number: ES-ABBVIE-17P-144-2162414-00

PATIENT
  Age: 37 Year
  Sex: Female

DRUGS (9)
  1. DEPAKINE [Suspect]
     Active Substance: VALPROATE SODIUM
     Indication: SCHIZOAFFECTIVE DISORDER BIPOLAR TYPE
     Dosage: TABLET, EXTENDED RELEASE
     Route: 048
     Dates: start: 20160621
  2. LORMETAZEPAM (LORMETAZEPAM) [Suspect]
     Active Substance: LORMETAZEPAM
     Indication: SCHIZOAFFECTIVE DISORDER BIPOLAR TYPE
     Route: 048
     Dates: start: 20160612, end: 20160901
  3. DEPAKINE [Suspect]
     Active Substance: VALPROATE SODIUM
     Dosage: TABLET, EXTENDED RELEASE
     Route: 048
     Dates: start: 20160612, end: 20160621
  4. SEROQUEL [Suspect]
     Active Substance: QUETIAPINE FUMARATE
     Indication: SCHIZOAFFECTIVE DISORDER BIPOLAR TYPE
     Dosage: TABLET, EXTENDED RELEASE
     Route: 048
     Dates: start: 20160612, end: 20160621
  5. SEROQUEL [Suspect]
     Active Substance: QUETIAPINE FUMARATE
     Dosage: TABLET, EXTENDED RELEASE
     Route: 048
     Dates: start: 20160621
  6. EUTIROX (LEVOTHYROXINE) [Concomitant]
     Active Substance: LEVOTHYROXINE SODIUM
     Indication: PRODUCT USED FOR UNKNOWN INDICATION
     Route: 065
  7. RIVOTRIL [Suspect]
     Active Substance: CLONAZEPAM
     Indication: SCHIZOAFFECTIVE DISORDER BIPOLAR TYPE
     Route: 048
     Dates: start: 20160612, end: 20160901
  8. RISPERDAL [Suspect]
     Active Substance: RISPERIDONE
     Indication: SCHIZOAFFECTIVE DISORDER BIPOLAR TYPE
     Route: 048
     Dates: start: 20160612, end: 20160621
  9. RISPERDAL [Suspect]
     Active Substance: RISPERIDONE
     Route: 048
     Dates: start: 20160612, end: 20160621

REACTIONS (2)
  - Abnormal weight gain [Unknown]
  - Drug interaction [Unknown]

NARRATIVE: CASE EVENT DATE: 20160623
